FAERS Safety Report 9334390 (Version 1)
Quarter: 2013Q2

REPORT INFORMATION
  Report Type: Spontaneous
  Country: US (occurrence: US)
  Receive Date: 20130606
  Receipt Date: 20130606
  Transmission Date: 20140414
  Serious: No
  Sender: FDA-Public Use
  Company Number: US-AMGEN-USASP2013028633

PATIENT
  Age: 78 Year
  Sex: Female

DRUGS (15)
  1. PROLIA [Suspect]
     Indication: OSTEOPOROSIS POSTMENOPAUSAL
     Dosage: UNK
     Dates: start: 201211
  2. LEVOXYL [Concomitant]
     Dosage: 112 MUG, QD
  3. LEVOXYL [Concomitant]
     Dosage: 125 MUG, UNK
  4. LOSARTAN [Concomitant]
     Dosage: 0.5 DF, QD
  5. AMLODIPINE [Concomitant]
     Dosage: 10 MG, QD
  6. ASPIRIN [Concomitant]
     Dosage: 81 MG, QD
  7. CALCIUM [Concomitant]
     Dosage: 600 MG, BID
  8. FISH OIL [Concomitant]
     Dosage: 1000 MG, BID
  9. OMEPRAZOLE [Concomitant]
     Dosage: 40 MG, QD
  10. VITAMIN D                          /00318501/ [Concomitant]
     Dosage: 1000 IU, QD
  11. CRESTOR [Concomitant]
     Dosage: 0.5 DF, QD
  12. ATENOLOL [Concomitant]
     Dosage: 25 MG, BID
  13. HYDROCHLOROTHIAZIDE [Concomitant]
     Dosage: 25 MG, QD
  14. ADVIL                              /00109201/ [Concomitant]
     Dosage: 200 MG 2 IN THE AM
  15. ADVIL PM                           /06117501/ [Concomitant]
     Dosage: 200 MG 2 IN THE PM

REACTIONS (1)
  - Alopecia [Unknown]
